FAERS Safety Report 4866699-0 (Version None)
Quarter: 2005Q4

REPORT INFORMATION
  Report Type: 
  Country: None (occurrence: None)
  Receive Date: 20051221
  Receipt Date: 20051207
  Transmission Date: 20060501
  Serious: Yes (Life-Threatening)
  Sender: FDA-Public Use
  Company Number: S05-FRA-05601-01

PATIENT
  Age: 81 Year
  Sex: Female

DRUGS (5)
  1. CITALOPRAM HYDROBROMIDE [Suspect]
     Dosage: 10 MG QD PO
     Route: 048
     Dates: start: 20050818, end: 20050818
  2. LEXOMIL (BROMAZEPAM) [Suspect]
     Dosage: 1.5 MG QD PO
     Route: 048
     Dates: start: 20050809, end: 20050813
  3. CLONAZEPAM [Suspect]
     Dosage: 1.5 MG QD PO
     Route: 048
     Dates: start: 20050818, end: 20050818
  4. FUROSEMIDE [Concomitant]
  5. DIGOXIN [Concomitant]

REACTIONS (21)
  - ASPARTATE AMINOTRANSFERASE INCREASED [None]
  - BLOOD ALKALINE PHOSPHATASE INCREASED [None]
  - BLOOD BILIRUBIN INCREASED [None]
  - BLOOD CREATINE PHOSPHOKINASE INCREASED [None]
  - BLOOD GLUCOSE INCREASED [None]
  - BLOOD POTASSIUM INCREASED [None]
  - BLOOD SODIUM INCREASED [None]
  - C-REACTIVE PROTEIN INCREASED [None]
  - CARDIAC DISORDER [None]
  - CARDIAC FAILURE [None]
  - CENTRAL-ALVEOLAR HYPOVENTILATION [None]
  - COMA [None]
  - CONDITION AGGRAVATED [None]
  - DISTURBANCE IN ATTENTION [None]
  - GAMMA-GLUTAMYLTRANSFERASE INCREASED [None]
  - GENERALISED OEDEMA [None]
  - GLASGOW COMA SCALE ABNORMAL [None]
  - HYPERCAPNIA [None]
  - PCO2 INCREASED [None]
  - RENAL FAILURE ACUTE [None]
  - THERAPEUTIC AGENT TOXICITY [None]
